FAERS Safety Report 7864185-7 (Version None)
Quarter: 2011Q4

REPORT INFORMATION
  Report Type: 
  Country: None (occurrence: None)
  Receive Date: 20111028
  Receipt Date: 20111025
  Transmission Date: 20120403
  Serious: Yes (Other)
  Sender: FDA-Public Use
  Company Number: US-PFIZER INC-2011235824

PATIENT
  Sex: Female

DRUGS (5)
  1. GABAPENTIN [Concomitant]
     Dosage: UNK
  2. ATIVAN [Concomitant]
     Dosage: UNK
  3. HYDROXYZINE [Concomitant]
     Dosage: UNK
  4. LAMICTAL [Concomitant]
     Dosage: UNK
  5. NEURONTIN [Suspect]
     Indication: ANXIETY
     Dosage: 200 MG, 3X/DAY
     Route: 048
     Dates: start: 20110901

REACTIONS (1)
  - OPTIC NEUROPATHY [None]
